FAERS Safety Report 14943039 (Version 4)
Quarter: 2021Q4

REPORT INFORMATION
  Report Type: Other
  Country: US (occurrence: None)
  Receive Date: 20180528
  Receipt Date: 20211215
  Transmission Date: 20220303
  Serious: Yes (Other)
  Sender: FDA-Public Use
  Company Number: US-ROCHE-2122708

PATIENT
  Age: 57 Year
  Sex: Female

DRUGS (1)
  1. OCREVUS [Suspect]
     Active Substance: OCRELIZUMAB
     Indication: Relapsing-remitting multiple sclerosis
     Dosage: FIRST HALF OF FIRST TREATMENT, 300MG ON DAY AND DAY 15, 600MG EVERY 6 MONTHS
     Route: 042
     Dates: start: 20180507

REACTIONS (16)
  - Herpes zoster [Not Recovered/Not Resolved]
  - Muscular weakness [Recovered/Resolved]
  - Fatigue [Unknown]
  - Myalgia [Not Recovered/Not Resolved]
  - Somnolence [Not Recovered/Not Resolved]
  - Pain in extremity [Not Recovered/Not Resolved]
  - Confusional state [Unknown]
  - Stress [Unknown]
  - Dysphonia [Unknown]
  - Balance disorder [Unknown]
  - Speech disorder [Unknown]
  - Upper respiratory tract infection [Unknown]
  - Fatigue [Unknown]
  - Asthenia [Not Recovered/Not Resolved]
  - COVID-19 [Unknown]
  - Road traffic accident [Unknown]

NARRATIVE: CASE EVENT DATE: 20211120
